FAERS Safety Report 8621255-3 (Version None)
Quarter: 2012Q3

REPORT INFORMATION
  Report Type: 
  Country: None (occurrence: None)
  Receive Date: 20120824
  Receipt Date: 20120816
  Transmission Date: 20120928
  Serious: Yes (Hospitalization, Other)
  Sender: FDA-Public Use
  Company Number: US-009507513-2012SP017341

PATIENT

DRUGS (1)
  1. NUVARING [Suspect]
     Dosage: UNK
     Dates: start: 20051201, end: 20100501

REACTIONS (16)
  - TONSILLAR DISORDER [None]
  - MAJOR DEPRESSION [None]
  - TRICUSPID VALVE INCOMPETENCE [None]
  - ACUTE TONSILLITIS [None]
  - PULMONARY VALVE INCOMPETENCE [None]
  - NAUSEA [None]
  - SIALOADENITIS [None]
  - VOMITING [None]
  - ADENOIDECTOMY [None]
  - DEEP VEIN THROMBOSIS [None]
  - ANXIETY [None]
  - PAIN [None]
  - PULMONARY EMBOLISM [None]
  - MITRAL VALVE INCOMPETENCE [None]
  - HEADACHE [None]
  - ARTHRALGIA [None]
